FAERS Safety Report 9174836 (Version 2)
Quarter: 2013Q2

REPORT INFORMATION
  Report Type: Spontaneous
  Country: US (occurrence: US)
  Receive Date: 20130320
  Receipt Date: 20130409
  Transmission Date: 20140414
  Serious: Yes (Other)
  Sender: FDA-Public Use
  Company Number: US-ELI_LILLY_AND_COMPANY-US201303003427

PATIENT
  Age: 41 Year
  Sex: Male

DRUGS (5)
  1. ZYPREXA [Suspect]
     Indication: SCHIZOPHRENIA
     Dosage: 1 DF, UNKNOWN
     Route: 048
     Dates: start: 20130121, end: 20130122
  2. CLOZAPINE [Concomitant]
     Dosage: 1 DF, UNKNOWN
     Route: 048
     Dates: start: 20130121, end: 20130122
  3. DEPAKOTE [Concomitant]
     Dosage: 500 MG, BID
     Route: 048
  4. COLACE [Concomitant]
     Dosage: 200 MG, QD
     Route: 048
  5. MULTIVITAMIN [Concomitant]
     Dosage: 1 DF, UNKNOWN
     Route: 048

REACTIONS (1)
  - Neutropenia [Recovered/Resolved]
